FAERS Safety Report 10121035 (Version 1)
Quarter: 2014Q2

REPORT INFORMATION
  Report Type: Report from Study
  Country: US (occurrence: US)
  Receive Date: 20140425
  Receipt Date: 20140425
  Transmission Date: 20141212
  Serious: Yes (Other)
  Sender: FDA-Public Use
  Company Number: US-ABBVIE-14P-163-1228396-00

PATIENT
  Sex: Female
  Weight: 117.13 kg

DRUGS (3)
  1. LUPRON DEPOT [Suspect]
     Indication: ENDOMETRIOSIS
     Dates: start: 2009
  2. LUPRON DEPOT [Suspect]
     Indication: PAIN
  3. LUPRON DEPOT [Suspect]
     Indication: HAEMORRHAGE

REACTIONS (9)
  - Multiple sclerosis [Unknown]
  - Pain [Recovered/Resolved]
  - Haemorrhage [Recovered/Resolved]
  - Pain [Unknown]
  - Haemorrhage [Unknown]
  - Fibromyalgia [Unknown]
  - Haemorrhage [Unknown]
  - Irritable bowel syndrome [Unknown]
  - Pain [Unknown]
